FAERS Safety Report 25909242 (Version 1)
Quarter: 2025Q4

REPORT INFORMATION
  Report Type: Spontaneous
  Country: US (occurrence: US)
  Receive Date: 20251011
  Receipt Date: 20251011
  Transmission Date: 20260118
  Serious: No
  Sender: CARNEGIE PHARMACEUTICALS LLC
  Company Number: US-CARNEGIE-000079

PATIENT
  Sex: Male

DRUGS (1)
  1. ERYTHROMYCIN ETHYLSUCCINATE [Suspect]
     Active Substance: ERYTHROMYCIN ETHYLSUCCINATE
     Indication: Off label use
     Route: 065

REACTIONS (2)
  - Gait disturbance [Unknown]
  - Off label use [Unknown]
